FAERS Safety Report 5135156-9 (Version None)
Quarter: 2006Q4

REPORT INFORMATION
  Report Type: 
  Country: None (occurrence: None)
  Receive Date: 20060831
  Receipt Date: 20051114
  Transmission Date: 20070319
  Serious: Yes (Hospitalization)
  Sender: FDA-Public Use
  Company Number: 2005110735

PATIENT
  Sex: Female
  Weight: 109.3169 kg

DRUGS (9)
  1. DETROL LA [Suspect]
     Indication: HYPERTONIC BLADDER
     Dosage: 4 MG (4 MG, 1 IN 1 D, ORAL)
     Route: 048
     Dates: start: 20050713, end: 20050824
  2. GLUCOPHAGE [Concomitant]
  3. BENAZEPRIL (BENAZEPRIL) [Concomitant]
  4. LIPITOR [Concomitant]
  5. NOVOLIN 70/30 [Concomitant]
  6. TOPROL-XL [Concomitant]
  7. AVANDIA [Concomitant]
  8. MOBIC [Concomitant]
  9. HYDROCHLOROTHIAZIDE [Concomitant]

REACTIONS (7)
  - DRUG EFFECT DECREASED [None]
  - FLUID RETENTION [None]
  - HEART RATE INCREASED [None]
  - INSOMNIA [None]
  - NOCTURIA [None]
  - PALPITATIONS [None]
  - THIRST [None]
